FAERS Safety Report 7021218-8 (Version None)
Quarter: 2010Q3

REPORT INFORMATION
  Report Type: 
  Country: None (occurrence: None)
  Receive Date: 20100929
  Receipt Date: 20100918
  Transmission Date: 20110219
  Serious: Yes (Other)
  Sender: FDA-Public Use
  Company Number: US-PFIZER INC-2010118166

PATIENT
  Sex: Female
  Weight: 70 kg

DRUGS (1)
  1. CHANTIX [Suspect]
     Indication: SMOKING CESSATION THERAPY
     Dosage: 0.5 MG, UNK DAILY
     Route: 048
     Dates: start: 20100908

REACTIONS (4)
  - DEPRESSION [None]
  - MORBID THOUGHTS [None]
  - NERVOUSNESS [None]
  - WITHDRAWAL SYNDROME [None]
